FAERS Safety Report 15887459 (Version 1)
Quarter: 2019Q1

REPORT INFORMATION
  Report Type: Spontaneous
  Country: FR (occurrence: FR)
  Receive Date: 20190130
  Receipt Date: 20190130
  Transmission Date: 20190417
  Serious: Yes (Death, Other)
  Sender: FDA-Public Use
  Company Number: FR-BRISTOL-MYERS SQUIBB COMPANY-BMS-2019-006775

PATIENT
  Age: 89 Year
  Sex: Female
  Weight: 59.1 kg

DRUGS (7)
  1. MACROGOL [Concomitant]
     Active Substance: POLYETHYLENE GLYCOLS
     Indication: CONSTIPATION
     Dosage: UNK
     Route: 048
  2. PARACETAMOL [Concomitant]
     Active Substance: ACETAMINOPHEN
     Indication: PAIN
     Dosage: 3 G, 1 DAY (FREQUENCY UNSPECIFIED)
     Route: 048
     Dates: end: 20190113
  3. LANSOPRAZOLE. [Concomitant]
     Active Substance: LANSOPRAZOLE
     Indication: GASTROOESOPHAGEAL REFLUX DISEASE
     Dosage: 15 MG, 1 DAY (FREQUENCY UNSPECIFIED)
     Route: 048
     Dates: end: 20190112
  4. BISOPROLOL [Concomitant]
     Active Substance: BISOPROLOL
     Indication: CARDIAC FAILURE
     Dosage: 10 MG, DAILY (FREQUENCY UNSPECIFIED)
     Route: 048
     Dates: start: 20190109, end: 20190113
  5. FUROSEMIDE. [Concomitant]
     Active Substance: FUROSEMIDE
     Indication: CARDIAC FAILURE
     Dosage: 40 MG, 1 DAY (FREQUENCY UNSPECIFIED)
     Route: 048
     Dates: end: 20190111
  6. FUNGIZONE [Concomitant]
     Active Substance: AMPHOTERICIN B
     Indication: ORAL CANDIDIASIS
     Dosage: UNK
     Route: 048
  7. ELIQUIS [Suspect]
     Active Substance: APIXABAN
     Indication: CEREBROVASCULAR ACCIDENT PROPHYLAXIS
     Dosage: 5 MG, DAILY (FREQUENCY UNSPECIFIED)
     Route: 048
     Dates: end: 20190107

REACTIONS (2)
  - Prerenal failure [Fatal]
  - Haematoma [Fatal]

NARRATIVE: CASE EVENT DATE: 20190107
